FAERS Safety Report 9099760 (Version 4)
Quarter: 2013Q2

REPORT INFORMATION
  Report Type: Spontaneous
  Country: JP (occurrence: JP)
  Receive Date: 20130214
  Receipt Date: 20130626
  Transmission Date: 20140414
  Serious: Yes (Other)
  Sender: FDA-Public Use
  Company Number: JP-ROCHE-1190840

PATIENT
  Age: 58 Year
  Sex: Male
  Weight: 49 kg

DRUGS (12)
  1. MIRCERA [Suspect]
     Indication: NEPHROGENIC ANAEMIA
     Route: 042
     Dates: start: 20121005
  2. MIRCERA [Suspect]
     Indication: NEPHROGENIC ANAEMIA
     Route: 042
  3. MIRCERA [Suspect]
     Indication: NEPHROGENIC ANAEMIA
     Route: 042
  4. MIRCERA [Suspect]
     Indication: NEPHROGENIC ANAEMIA
     Route: 042
     Dates: start: 20130123
  5. FERRIC OXIDE SACCHARATED [Concomitant]
     Indication: IRON DEFICIENCY ANAEMIA
     Route: 042
     Dates: start: 20130201
  6. L-CARNITINE [Concomitant]
     Indication: CARNITINE DEFICIENCY
     Route: 048
     Dates: start: 20120307
  7. PARIET [Concomitant]
     Indication: GASTROOESOPHAGEAL REFLUX DISEASE
     Route: 048
     Dates: start: 20111007
  8. CALTAN [Concomitant]
     Indication: HYPERPHOSPHATAEMIA
     Route: 048
     Dates: start: 20071126
  9. APLACE [Concomitant]
     Indication: GASTRIC ULCER
     Route: 048
     Dates: start: 20090220
  10. NORVASC [Concomitant]
     Indication: HYPERTENSION
     Route: 048
     Dates: start: 20110330
  11. ONEALFA [Concomitant]
     Indication: HYPERPARATHYROIDISM SECONDARY
     Route: 048
     Dates: start: 20120830
  12. KAYEXALATE [Concomitant]
     Indication: HYPERKALAEMIA
     Route: 048
     Dates: start: 20121212

REACTIONS (1)
  - Anaemia [Recovering/Resolving]
